FAERS Safety Report 25550610 (Version 1)
Quarter: 2025Q3

REPORT INFORMATION
  Report Type: Spontaneous
  Country: US (occurrence: US)
  Receive Date: 20250714
  Receipt Date: 20250714
  Transmission Date: 20251020
  Serious: No
  Sender: SANOFI AVENTIS
  Company Number: US-SA-2025SA197633

PATIENT
  Age: 67 Year
  Sex: Male
  Weight: 85 kg

DRUGS (2)
  1. DUPIXENT [Suspect]
     Active Substance: DUPILUMAB
     Dosage: 300 MG, QOW
     Route: 058
  2. ALBUTEROL [Concomitant]
     Active Substance: ALBUTEROL

REACTIONS (4)
  - Eczema [Recovering/Resolving]
  - Rash [Recovering/Resolving]
  - Therapeutic response shortened [Recovering/Resolving]
  - Therapeutic response unexpected [Unknown]
